FAERS Safety Report 8378412-3 (Version None)
Quarter: 2012Q2

REPORT INFORMATION
  Report Type: 
  Country: None (occurrence: None)
  Receive Date: 20120522
  Receipt Date: 20110714
  Transmission Date: 20120825
  Serious: No
  Sender: FDA-Public Use
  Company Number: US-ASTRAZENECA-2011SE42246

PATIENT
  Age: 72 Year
  Sex: Male

DRUGS (2)
  1. NEXIUM [Concomitant]
  2. OMEPRAZOLE [Suspect]
     Route: 048

REACTIONS (3)
  - PAIN [None]
  - GASTROOESOPHAGEAL REFLUX DISEASE [None]
  - DRUG INEFFECTIVE [None]
